FAERS Safety Report 6998945-1 (Version None)
Quarter: 2010Q3

REPORT INFORMATION
  Report Type: 
  Country: None (occurrence: None)
  Receive Date: 20100901
  Receipt Date: 20090713
  Transmission Date: 20110219
  Serious: Yes (Life-Threatening, Hospitalization, Other)
  Sender: FDA-Public Use
  Company Number: WAES 0907USA01664

PATIENT
  Age: 56 Year
  Sex: Female
  Weight: 57.1532 kg

DRUGS (4)
  1. MAXALT [Suspect]
     Indication: MIGRAINE
     Dosage: 10 MG/PRN/PO
     Dates: end: 20090705
  2. FOSAMAX [Concomitant]
  3. ORECEA [Concomitant]
  4. WELLBUTRIN [Concomitant]

REACTIONS (1)
  - ARTERIOSPASM CORONARY [None]
